FAERS Safety Report 7096543-5 (Version None)
Quarter: 2010Q4

REPORT INFORMATION
  Report Type: 
  Country: None (occurrence: None)
  Receive Date: 20101111
  Receipt Date: 20101106
  Transmission Date: 20110411
  Serious: Yes (Hospitalization)
  Sender: FDA-Public Use
  Company Number: A0891799A

PATIENT
  Sex: Male

DRUGS (1)
  1. AVANDIA [Suspect]
     Dosage: 8MG PER DAY
     Dates: end: 20091201

REACTIONS (6)
  - ANGINA UNSTABLE [None]
  - CARDIAC DISORDER [None]
  - CORONARY ARTERY BYPASS [None]
  - HYPERTENSION [None]
  - OEDEMA PERIPHERAL [None]
  - PLEURAL EFFUSION [None]
